FAERS Safety Report 8118678-8 (Version None)
Quarter: 2012Q1

REPORT INFORMATION
  Report Type: 
  Country: None (occurrence: None)
  Receive Date: 20120202
  Receipt Date: 20120130
  Transmission Date: 20120608
  Serious: Yes (Hospitalization, Other)
  Sender: FDA-Public Use
  Company Number: 2010SP064933

PATIENT
  Age: 39 Year
  Sex: Female
  Weight: 81.6475 kg

DRUGS (4)
  1. NUVARING [Suspect]
     Indication: CONTRACEPTION
     Dates: start: 20060401, end: 20081201
  2. VITMAIN B COMPLEX [Concomitant]
  3. COUMADIN [Suspect]
     Indication: ANTICOAGULANT THERAPY
     Dates: start: 20081201, end: 20090101
  4. NSAID'S [Concomitant]

REACTIONS (55)
  - PULMONARY EMBOLISM [None]
  - MAY-THURNER SYNDROME [None]
  - HAEMORRHOIDS [None]
  - MITRAL VALVE INCOMPETENCE [None]
  - INTERNATIONAL NORMALISED RATIO INCREASED [None]
  - DEVICE EXPULSION [None]
  - VENOUS INSUFFICIENCY [None]
  - CEREBROVASCULAR ACCIDENT [None]
  - CONVULSION [None]
  - UTERINE CERVICAL SQUAMOUS METAPLASIA [None]
  - AMNESIA [None]
  - RECTAL HAEMORRHAGE [None]
  - FLANK PAIN [None]
  - BACK PAIN [None]
  - PULMONARY HYPERTENSION [None]
  - THROMBOSIS [None]
  - CERVICAL DYSPLASIA [None]
  - CONFUSIONAL STATE [None]
  - MUSCULOSKELETAL CHEST PAIN [None]
  - RHINITIS [None]
  - HYPERTENSION [None]
  - MUSCLE RUPTURE [None]
  - CYSTITIS [None]
  - DYSPEPSIA [None]
  - WEIGHT INCREASED [None]
  - MYALGIA [None]
  - INFECTIOUS PERITONITIS [None]
  - MULTIPLE INJURIES [None]
  - HEART RATE IRREGULAR [None]
  - ABDOMINAL PAIN [None]
  - ANGINA PECTORIS [None]
  - LACERATION [None]
  - URINARY TRACT INFECTION BACTERIAL [None]
  - BLOOD URINE PRESENT [None]
  - COLONIC POLYP [None]
  - TACHYCARDIA [None]
  - MUSCLE STRAIN [None]
  - MIDDLE INSOMNIA [None]
  - ANASTOMOTIC ULCER PERFORATION [None]
  - DEEP VEIN THROMBOSIS [None]
  - OVARIAN CYST [None]
  - ABDOMINAL PAIN UPPER [None]
  - LEFT ATRIAL DILATATION [None]
  - TRICUSPID VALVE INCOMPETENCE [None]
  - THROMBOPHLEBITIS SUPERFICIAL [None]
  - STRESS [None]
  - INAPPROPRIATE SCHEDULE OF DRUG ADMINISTRATION [None]
  - MEDICAL DEVICE PAIN [None]
  - EPISTAXIS [None]
  - MUSCULOSKELETAL STIFFNESS [None]
  - HYPERCOAGULATION [None]
  - ALTERED STATE OF CONSCIOUSNESS [None]
  - HYDRONEPHROSIS [None]
  - OEDEMA PERIPHERAL [None]
  - ARTHRALGIA [None]
